FAERS Safety Report 20871849 (Version 1)
Quarter: 2022Q2

REPORT INFORMATION
  Report Type: Spontaneous
  Country: CN (occurrence: None)
  Receive Date: 20220525
  Receipt Date: 20220525
  Transmission Date: 20220721
  Serious: Yes (Other)
  Sender: FDA-Public Use
  Company Number: CN-ROCHE-3102661

PATIENT
  Age: 72 Year
  Sex: Female
  Weight: 47 kg

DRUGS (17)
  1. XELODA [Suspect]
     Active Substance: CAPECITABINE
     Indication: Rectal cancer
     Route: 048
     Dates: start: 201705, end: 201709
  2. XELODA [Suspect]
     Active Substance: CAPECITABINE
     Route: 048
     Dates: start: 2020
  3. XELODA [Suspect]
     Active Substance: CAPECITABINE
     Route: 048
     Dates: start: 202011
  4. AVASTIN [Suspect]
     Active Substance: BEVACIZUMAB
     Indication: Rectal cancer
     Route: 065
     Dates: start: 20191103, end: 20200224
  5. AVASTIN [Suspect]
     Active Substance: BEVACIZUMAB
     Route: 065
     Dates: start: 20210107
  6. OXALIPLATIN [Concomitant]
     Active Substance: OXALIPLATIN
     Indication: Rectal cancer
     Dates: start: 201705, end: 201709
  7. OXALIPLATIN [Concomitant]
     Active Substance: OXALIPLATIN
     Dates: start: 20191103
  8. OXALIPLATIN [Concomitant]
     Active Substance: OXALIPLATIN
     Dates: end: 20200224
  9. LEUCOVORIN CALCIUM [Concomitant]
     Active Substance: LEUCOVORIN CALCIUM
     Indication: Rectal cancer
     Dates: start: 20191103, end: 20200224
  10. LEUCOVORIN CALCIUM [Concomitant]
     Active Substance: LEUCOVORIN CALCIUM
     Dates: start: 20200331
  11. FLUOROURACIL [Concomitant]
     Active Substance: FLUOROURACIL
     Indication: Rectal cancer
     Dosage: 600 MG VIA INTRAVENOUS INJECTION, AND 3600 MG VIA CONTINUOUS INTRAVENOUS INJECTION?LASTING FOR 46 HO
     Dates: start: 20191103, end: 20200224
  12. FLUOROURACIL [Concomitant]
     Active Substance: FLUOROURACIL
     Dosage: 5-FLUOROURACIL 550 MG, 5-FLUOROURACIL 3250 MG CONTINUOUS INTRAVENOUS INJECTION?LASTING FOR 46 HOURS
     Dates: start: 20200331
  13. CETUXIMAB [Concomitant]
     Active Substance: CETUXIMAB
     Indication: Rectal cancer
     Dates: start: 20200331
  14. CETUXIMAB [Concomitant]
     Active Substance: CETUXIMAB
     Dates: start: 20201106
  15. IRINOTECAN [Concomitant]
     Active Substance: IRINOTECAN
     Indication: Rectal cancer
     Dates: start: 20200331
  16. IRINOTECAN [Concomitant]
     Active Substance: IRINOTECAN
     Dates: start: 20201106
  17. SINTILIMAB [Concomitant]
     Active Substance: SINTILIMAB
     Indication: Rectal cancer
     Route: 041
     Dates: start: 20210108

REACTIONS (7)
  - Autoimmune myocarditis [Unknown]
  - Gastrointestinal disorder [Recovering/Resolving]
  - Platelet count decreased [Unknown]
  - Neutrophil count decreased [Unknown]
  - White blood cell count decreased [Unknown]
  - Rash [Unknown]
  - Asthenia [Unknown]
